FAERS Safety Report 9095346 (Version 1)
Quarter: 2013Q1

REPORT INFORMATION
  Report Type: Spontaneous
  Country: US (occurrence: US)
  Receive Date: 20130201
  Receipt Date: 20130201
  Transmission Date: 20140127
  Serious: No
  Sender: FDA-Public Use
  Company Number: US-PFIZER INC-2013037410

PATIENT
  Sex: 0

DRUGS (1)
  1. CHANTIX [Suspect]
     Indication: SMOKING CESSATION THERAPY
     Dosage: UNK

REACTIONS (9)
  - Nasopharyngitis [Unknown]
  - Influenza [Unknown]
  - Cough [Unknown]
  - Pyrexia [Unknown]
  - Pain [Unknown]
  - Dyspnoea [Unknown]
  - Nicotine dependence [Unknown]
  - Feeling abnormal [Unknown]
  - Fatigue [Unknown]
